FAERS Safety Report 6368898-8 (Version None)
Quarter: 2009Q3

REPORT INFORMATION
  Report Type: 
  Country: None (occurrence: None)
  Receive Date: 20090922
  Receipt Date: 20090909
  Transmission Date: 20100115
  Serious: Yes (Hospitalization, Other)
  Sender: FDA-Public Use
  Company Number: US-PFIZER INC-2009271091

PATIENT
  Age: 56 Year
  Sex: Male
  Weight: 64.853 kg

DRUGS (9)
  1. GEODON [Suspect]
     Indication: PSYCHOTIC DISORDER
     Dosage: 40 MG, 2X/DAY
     Dates: start: 20090804, end: 20090901
  2. ALLEGRA [Concomitant]
  3. NIACIN [Concomitant]
  4. CALCIUM WITH VITAMIN D [Concomitant]
  5. SUDOGEST [Concomitant]
  6. PSYLLIUM [Concomitant]
  7. SENOKOT [Concomitant]
  8. TRAZODONE [Concomitant]
  9. RESTORIL [Concomitant]
     Dosage: FREQUENCY: AS NEEDED,

REACTIONS (2)
  - GALLBLADDER DISORDER [None]
  - PANCREATITIS [None]
